FAERS Safety Report 8516262-5 (Version None)
Quarter: 2012Q3

REPORT INFORMATION
  Report Type: 
  Country: None (occurrence: None)
  Receive Date: 20120717
  Receipt Date: 20120703
  Transmission Date: 20120928
  Serious: Yes (Other)
  Sender: FDA-Public Use
  Company Number: CHPA2012US014956

PATIENT
  Age: 71 Year
  Sex: Female

DRUGS (1)
  1. EXCEDRIN EXTRA STRENGTH TABLETS [Suspect]
     Indication: RHINITIS
     Dosage: 3 DF, PRN
     Route: 048

REACTIONS (5)
  - ABDOMINAL DISCOMFORT [None]
  - DUODENAL ULCER [None]
  - INCORRECT DOSE ADMINISTERED [None]
  - GASTRIC MUCOSAL LESION [None]
  - OFF LABEL USE [None]
